FAERS Safety Report 17346716 (Version 1)
Quarter: 2020Q1

REPORT INFORMATION
  Report Type: Report from Study
  Country: US (occurrence: US)
  Receive Date: 20200129
  Receipt Date: 20200129
  Transmission Date: 20200409
  Serious: No
  Sender: FDA-Public Use
  Company Number: US-EXELIXIS-CABO-19023487

PATIENT
  Sex: Female

DRUGS (16)
  1. OMEGA 3 [Concomitant]
     Active Substance: OMEGA-3 FATTY ACIDS
  2. ATIVAN [Concomitant]
     Active Substance: LORAZEPAM
  3. MSM [Concomitant]
     Active Substance: DIMETHYL SULFONE
  4. ZOLOFT [Concomitant]
     Active Substance: SERTRALINE HYDROCHLORIDE
  5. COMETRIQ [Suspect]
     Active Substance: CABOZANTINIB S-MALATE
     Dosage: 40 MG, QD
     Route: 048
     Dates: start: 20190519, end: 20190723
  6. LAXATIVE [Concomitant]
     Active Substance: UNSPECIFIED INGREDIENT
  7. VICODIN [Concomitant]
     Active Substance: ACETAMINOPHEN\HYDROCODONE BITARTRATE
  8. METFORMIN [Concomitant]
     Active Substance: METFORMIN HYDROCHLORIDE
  9. PROBIOTICA [Concomitant]
     Active Substance: PROBIOTICS NOS
  10. SYNTHROID [Concomitant]
     Active Substance: LEVOTHYROXINE SODIUM
  11. AMLODIPINE [Concomitant]
     Active Substance: AMLODIPINE BESYLATE
  12. SENNOSIDES. [Concomitant]
     Active Substance: SENNOSIDES
  13. ASPIRIN. [Concomitant]
     Active Substance: ASPIRIN
  14. TRAVATAN [Concomitant]
     Active Substance: TRAVOPROST
  15. COMETRIQ [Suspect]
     Active Substance: CABOZANTINIB S-MALATE
     Indication: THYROID CANCER
     Dosage: 60 MG, QD
     Route: 048
     Dates: start: 20190123
  16. COQ10 [Concomitant]
     Active Substance: UBIDECARENONE

REACTIONS (4)
  - Skin ulcer [Recovering/Resolving]
  - Blister [Recovering/Resolving]
  - Burning sensation [Recovering/Resolving]
  - Pruritus [Recovering/Resolving]
